FAERS Safety Report 12582949 (Version 1)
Quarter: 2016Q3

REPORT INFORMATION
  Report Type: Spontaneous
  Country: US (occurrence: US)
  Receive Date: 20160722
  Receipt Date: 20160722
  Transmission Date: 20161109
  Serious: Yes (Hospitalization, Other)
  Sender: FDA-Public Use
  Company Number: US-UNITED THERAPEUTICS-UNT-2016-011403

PATIENT
  Sex: Female

DRUGS (2)
  1. REMODULIN [Suspect]
     Active Substance: TREPROSTINIL
     Dosage: 335 MICROL/HR, CONTINUING
     Route: 041
     Dates: start: 20160126
  2. REMODULIN [Suspect]
     Active Substance: TREPROSTINIL
     Indication: PULMONARY ARTERIAL HYPERTENSION
     Dosage: 0.1895 ?G/KG, EVERY 48 HOURS
     Route: 041
     Dates: start: 201512

REACTIONS (3)
  - Device related infection [Unknown]
  - Staphylococcal infection [Unknown]
  - Device use error [Unknown]

NARRATIVE: CASE EVENT DATE: 201607
